FAERS Safety Report 25727037 (Version 1)
Quarter: 2025Q3

REPORT INFORMATION
  Report Type: Spontaneous
  Country: GB (occurrence: GB)
  Receive Date: 20250826
  Receipt Date: 20250826
  Transmission Date: 20251020
  Serious: Yes (Other)
  Sender: MYLAN
  Company Number: None

PATIENT
  Age: 75 Year
  Sex: Male
  Weight: 82 kg

DRUGS (4)
  1. ATORVASTATIN [Suspect]
     Active Substance: ATORVASTATIN
     Indication: Blood cholesterol increased
     Dosage: 20 MILLIGRAM, PM (20MG ONCE A DAY AT NIGHT)
     Dates: start: 20250620, end: 20250728
  2. ATORVASTATIN [Suspect]
     Active Substance: ATORVASTATIN
     Dosage: 20 MILLIGRAM, PM (20MG ONCE A DAY AT NIGHT)
     Route: 065
     Dates: start: 20250620, end: 20250728
  3. ATORVASTATIN [Suspect]
     Active Substance: ATORVASTATIN
     Dosage: 20 MILLIGRAM, PM (20MG ONCE A DAY AT NIGHT)
     Route: 065
     Dates: start: 20250620, end: 20250728
  4. ATORVASTATIN [Suspect]
     Active Substance: ATORVASTATIN
     Dosage: 20 MILLIGRAM, PM (20MG ONCE A DAY AT NIGHT)
     Dates: start: 20250620, end: 20250728

REACTIONS (6)
  - Arthralgia [Not Recovered/Not Resolved]
  - Ear discomfort [Recovered/Resolved]
  - Balance disorder [Recovered/Resolved]
  - Bone pain [Not Recovered/Not Resolved]
  - Abdominal discomfort [Recovered/Resolved]
  - Diarrhoea [Recovered/Resolved]

NARRATIVE: CASE EVENT DATE: 20250710
